FAERS Safety Report 4272816-6 (Version None)
Quarter: 2004Q1

REPORT INFORMATION
  Report Type: 
  Country: None (occurrence: None)
  Receive Date: 20040114
  Receipt Date: 20040106
  Transmission Date: 20041129
  Serious: Yes (Hospitalization, Other)
  Sender: FDA-Public Use
  Company Number: 2004000976

PATIENT
  Sex: Female

DRUGS (1)
  1. GEODON [Suspect]
     Indication: SCHIZOAFFECTIVE DISORDER

REACTIONS (3)
  - BLOOD POTASSIUM DECREASED [None]
  - ELECTROCARDIOGRAM ABNORMAL [None]
  - MANIA [None]
